FAERS Safety Report 7942938-4 (Version None)
Quarter: 2011Q4

REPORT INFORMATION
  Report Type: 
  Country: None (occurrence: None)
  Receive Date: 20111128
  Receipt Date: 20111122
  Transmission Date: 20120403
  Serious: Yes (Hospitalization, Disabling, Other)
  Sender: FDA-Public Use
  Company Number: US-MERCK-1105USA03424

PATIENT
  Age: 62 Year
  Sex: Female
  Weight: 63 kg

DRUGS (9)
  1. FOSAMAX [Suspect]
     Indication: OSTEOPOROSIS
     Route: 048
     Dates: start: 20010404, end: 20100224
  2. BONIVA [Suspect]
     Indication: OSTEOPOROSIS
     Route: 048
     Dates: start: 20100225, end: 20110118
  3. BONIVA [Suspect]
     Indication: OSTEOPENIA
     Route: 048
     Dates: start: 20100225, end: 20110118
  4. ALENDRONATE SODIUM [Suspect]
     Indication: OSTEOPOROSIS
     Route: 048
     Dates: start: 20090508, end: 20100201
  5. HORMONES (UNSPECIFIED) [Concomitant]
     Route: 065
     Dates: start: 20010101, end: 20090101
  6. FOSAMAX PLUS D [Suspect]
     Indication: OSTEOPENIA
     Route: 048
     Dates: start: 20060203
  7. FOSAMAX [Suspect]
     Indication: OSTEOPENIA
     Route: 048
     Dates: start: 20010404, end: 20100224
  8. FOSAMAX PLUS D [Suspect]
     Indication: OSTEOPOROSIS
     Route: 048
     Dates: start: 20060203
  9. ALENDRONATE SODIUM [Suspect]
     Indication: OSTEOPENIA
     Route: 048
     Dates: start: 20090508, end: 20100201

REACTIONS (29)
  - TONSILLAR DISORDER [None]
  - OEDEMA [None]
  - TOOTH DISORDER [None]
  - STRESS [None]
  - DIARRHOEA [None]
  - BRONCHITIS [None]
  - GASTRIC DISORDER [None]
  - TINNITUS [None]
  - DRY SKIN [None]
  - OSTEOARTHRITIS [None]
  - HYPERTENSION [None]
  - CELLULITIS [None]
  - NAUSEA [None]
  - DEPRESSION [None]
  - FALL [None]
  - STRESS FRACTURE [None]
  - ANXIETY [None]
  - ARTHRITIS [None]
  - HOT FLUSH [None]
  - FEMUR FRACTURE [None]
  - CHEST PAIN [None]
  - HYPERLIPIDAEMIA [None]
  - EXTERNAL EAR DISORDER [None]
  - SCOTOMA [None]
  - INFLAMMATORY BOWEL DISEASE [None]
  - LOW TURNOVER OSTEOPATHY [None]
  - BLOOD CHOLESTEROL INCREASED [None]
  - INSOMNIA [None]
  - EUSTACHIAN TUBE DISORDER [None]
